FAERS Safety Report 7357055-4 (Version None)
Quarter: 2011Q1

REPORT INFORMATION
  Report Type: 
  Country: None (occurrence: None)
  Receive Date: 20110308
  Receipt Date: 20110223
  Transmission Date: 20110831
  Serious: Yes (Hospitalization, Other)
  Sender: FDA-Public Use
  Company Number: EU-2011-10019

PATIENT
  Age: 66 Year
  Sex: Male

DRUGS (10)
  1. COMBAREN (CODEINE PHOSPHATE, DICLOFENAC SODIUM) [Concomitant]
  2. REMERGIL (MIRTAZAPINE) [Concomitant]
  3. SAMSCA [Suspect]
     Indication: INAPPROPRIATE ANTIDIURETIC HORMONE SECRETION
     Dosage: 15 MG MILLIGRAM(S), SINGLE, ORAL
     Route: 048
     Dates: start: 20110210, end: 20110210
  4. CHEMOTHERAPEUTICS [Concomitant]
  5. ZOFRAN [Concomitant]
  6. NACL (NACL) [Concomitant]
  7. MORPHINE SULFATE [Concomitant]
  8. PANTOPRAZOLE [Concomitant]
  9. DEXAMETHASONE [Concomitant]
  10. LORAZEPAM [Concomitant]

REACTIONS (1)
  - RAPID CORRECTION OF HYPONATRAEMIA [None]
